FAERS Safety Report 16311915 (Version 3)
Quarter: 2020Q3

REPORT INFORMATION
  Report Type: Report from Study
  Country: US (occurrence: US)
  Receive Date: 20190514
  Receipt Date: 20200901
  Transmission Date: 20201102
  Serious: No
  Sender: FDA-Public Use
  Company Number: US-ALEXION PHARMACEUTICALS INC.-A201907007

PATIENT
  Sex: Male

DRUGS (1)
  1. STRENSIQ [Suspect]
     Active Substance: ASFOTASE ALFA
     Indication: HYPOPHOSPHATASIA
     Dosage: UNK, UNK
     Route: 065

REACTIONS (6)
  - Migraine [Recovering/Resolving]
  - Abdominal discomfort [Unknown]
  - Liver function test increased [Unknown]
  - Pain [Unknown]
  - Injection site reaction [Unknown]
  - Malaise [Unknown]

NARRATIVE: CASE EVENT DATE: 20190501
